FAERS Safety Report 8172146-6 (Version None)
Quarter: 2012Q1

REPORT INFORMATION
  Report Type: 
  Country: None (occurrence: None)
  Receive Date: 20120228
  Receipt Date: 20120222
  Transmission Date: 20120608
  Serious: Yes (Life-Threatening, Disabling)
  Sender: FDA-Public Use
  Company Number: US-MERCK-1202USA03646

PATIENT
  Age: 80 Year
  Sex: Female

DRUGS (7)
  1. OXYBUTYNIN [Concomitant]
     Route: 065
  2. HYDROCHLOROTHIAZIDE [Concomitant]
     Route: 065
  3. HYDRALAZINE [Concomitant]
     Route: 065
  4. JANUVIA [Suspect]
     Route: 048
     Dates: start: 20120114
  5. FAMOTIDINE [Concomitant]
     Route: 065
  6. LEVOXYL [Concomitant]
     Route: 065
  7. CELEBREX [Concomitant]
     Route: 065

REACTIONS (7)
  - RASH [None]
  - ADVERSE EVENT [None]
  - DYSPNOEA [None]
  - URTICARIA [None]
  - DRY SKIN [None]
  - SWOLLEN TONGUE [None]
  - LIP SWELLING [None]
